FAERS Safety Report 12254716 (Version 1)
Quarter: 2016Q2

REPORT INFORMATION
  Report Type: Report from Study
  Country: IT (occurrence: IT)
  Receive Date: 20160411
  Receipt Date: 20160411
  Transmission Date: 20160815
  Serious: Yes (Death, Hospitalization)
  Sender: FDA-Public Use
  Company Number: IT-TEVA-649520ISR

PATIENT
  Age: 51 Year
  Sex: Male
  Weight: 73 kg

DRUGS (9)
  1. NYSTATIN. [Concomitant]
     Active Substance: NYSTATIN
     Dates: start: 20160301
  2. METOCLOPRAMIDE. [Concomitant]
     Active Substance: METOCLOPRAMIDE
     Dosage: 30 MILLIGRAM DAILY;
     Route: 048
     Dates: start: 20160225, end: 20160228
  3. APREPITANT. [Concomitant]
     Active Substance: APREPITANT
     Dates: start: 20160224
  4. CISPLATIN. [Suspect]
     Active Substance: CISPLATIN
     Indication: ADENOCARCINOMA GASTRIC
     Route: 042
     Dates: start: 20160224, end: 20160224
  5. FLUOROURACIL. [Suspect]
     Active Substance: FLUOROURACIL
     Indication: ADENOCARCINOMA GASTRIC
     Route: 042
     Dates: start: 20160224, end: 20160224
  6. ONDANSETRON [Concomitant]
     Active Substance: ONDANSETRON
     Dates: start: 20160224
  7. RANITIDINE. [Concomitant]
     Active Substance: RANITIDINE
     Dates: start: 20160224
  8. DEXAMETHASONE. [Concomitant]
     Active Substance: DEXAMETHASONE
     Route: 030
     Dates: start: 20160226, end: 20160229
  9. BF-CHLORPHENAMINE [Concomitant]
     Dates: start: 20160226

REACTIONS (2)
  - Small intestinal perforation [Fatal]
  - Vomiting [Fatal]

NARRATIVE: CASE EVENT DATE: 20160302
